FAERS Safety Report 24890836 (Version 2)
Quarter: 2025Q2

REPORT INFORMATION
  Report Type: Spontaneous
  Country: US (occurrence: US)
  Receive Date: 20250127
  Receipt Date: 20250602
  Transmission Date: 20250716
  Serious: Yes (Other)
  Sender: PFIZER
  Company Number: US-PFIZER INC-PV202300016634

PATIENT
  Age: 52 Year
  Sex: Female

DRUGS (6)
  1. LORBRENA [Suspect]
     Active Substance: LORLATINIB
     Indication: Lung neoplasm malignant
     Dosage: TAKE 2 TABLETS 50 MG TOTAL BY MOUTH DAILY
     Route: 048
  2. LORBRENA [Suspect]
     Active Substance: LORLATINIB
  3. LORBRENA [Suspect]
     Active Substance: LORLATINIB
     Dosage: 50 MG, DAILY, (TAKE 2 TABLETS (OF 25MG) DAILY)
     Route: 048
  4. LORBRENA [Suspect]
     Active Substance: LORLATINIB
     Dosage: 50 MG, DAILY
  5. LORBRENA [Suspect]
     Active Substance: LORLATINIB
     Dosage: TAKE 2 TABLETS (50 MG TOTAL) BY MOUTH ONCE DAILY. TAKE WITH OR WITHOUT FOOD. DO NOT CRUSH, CHEW, OR
     Route: 048
  6. NEURONTIN [Concomitant]
     Active Substance: GABAPENTIN
     Dosage: TAKE 1 CAPSULE BY MOUTH 3 TIMES/TAKE 1 CAPSULE BY MOUTH 3 (THREE) TIMES A DAY
     Route: 048

REACTIONS (5)
  - Suicidal ideation [Unknown]
  - Wrong technique in product usage process [Unknown]
  - Intentional product misuse [Unknown]
  - Visual impairment [Unknown]
  - Depressed mood [Unknown]
